FAERS Safety Report 7743179-6 (Version None)
Quarter: 2011Q3

REPORT INFORMATION
  Report Type: 
  Country: None (occurrence: None)
  Receive Date: 20110825
  Receipt Date: 20110812
  Transmission Date: 20111222
  Serious: Yes (Hospitalization, Disabling)
  Sender: FDA-Public Use
  Company Number: 2010SP028345

PATIENT
  Age: 33 Year
  Sex: Female
  Weight: 82.5547 kg

DRUGS (1)
  1. NUVARING [Suspect]
     Indication: MENSTRUAL DISORDER
     Dates: start: 20080423, end: 20080515

REACTIONS (9)
  - CARDIOLIPIN ANTIBODY POSITIVE [None]
  - PNEUMONIA [None]
  - HYPERCOAGULATION [None]
  - PULMONARY EMBOLISM [None]
  - MUSCLE SPASMS [None]
  - HEPATIC CYST [None]
  - DEHYDRATION [None]
  - ANAEMIA [None]
  - LIVER DISORDER [None]
